FAERS Safety Report 12837951 (Version 1)
Quarter: 2016Q4

REPORT INFORMATION
  Report Type: Spontaneous
  Country: JP (occurrence: JP)
  Receive Date: 20161012
  Receipt Date: 20161012
  Transmission Date: 20170207
  Serious: Yes (Other)
  Sender: FDA-Public Use
  Company Number: JP-PFIZER INC-2015453273

PATIENT
  Sex: Male

DRUGS (2)
  1. SUTENT [Suspect]
     Active Substance: SUNITINIB MALATE
     Indication: RENAL CANCER METASTATIC
     Dosage: 25 MG, DAILY 2 WEEKS ON TREATMENT FOLLOWED BY 1 WEEK OFF
     Route: 048
  2. SUTENT [Suspect]
     Active Substance: SUNITINIB MALATE
     Dosage: DOSE REDUCTION
     Route: 048
     Dates: end: 2016

REACTIONS (5)
  - Nasopharyngitis [Recovered/Resolved]
  - Pneumonia aspiration [Unknown]
  - Neurosis [Unknown]
  - Cognitive disorder [Unknown]
  - Fluid retention [Recovered/Resolved]

NARRATIVE: CASE EVENT DATE: 201603
